FAERS Safety Report 16463582 (Version 1)
Quarter: 2019Q3

REPORT INFORMATION
  Report Type: Spontaneous
  Country: UA (occurrence: UA)
  Receive Date: 20190620
  Receipt Date: 20190620
  Transmission Date: 20191004
  Serious: Yes (Hospitalization, Disabling)
  Sender: FDA-Public Use
  Company Number: None

PATIENT
  Age: 27 Year
  Sex: Male
  Weight: 74 kg

DRUGS (2)
  1. ROGAINE [Suspect]
     Active Substance: MINOXIDIL
  2. FOLCRESS( MINOXIDIL 5% LIQUID SOLUTION) [Suspect]
     Active Substance: MINOXIDIL
     Indication: ALOPECIA
     Route: 062
     Dates: start: 20190322, end: 20190608

REACTIONS (6)
  - Dizziness [None]
  - Neck pain [None]
  - Heart rate increased [None]
  - Hypertension [None]
  - Presyncope [None]
  - Fatigue [None]

NARRATIVE: CASE EVENT DATE: 20190517
